FAERS Safety Report 6408788-5 (Version None)
Quarter: 2009Q4

REPORT INFORMATION
  Report Type: 
  Country: None (occurrence: None)
  Receive Date: 20091021
  Receipt Date: 20091013
  Transmission Date: 20100525
  Serious: Yes (Hospitalization)
  Sender: FDA-Public Use
  Company Number: A0812567A

PATIENT
  Age: 62 Year
  Sex: Male
  Weight: 127.3 kg

DRUGS (19)
  1. AVANDIA [Suspect]
     Indication: DIABETES MELLITUS
     Dosage: 8MG TWICE PER DAY
     Route: 048
     Dates: start: 20030101, end: 20081215
  2. FLUOXETINE [Concomitant]
  3. METFORMIN [Concomitant]
  4. LORAZEPAM [Concomitant]
  5. PREVACID [Concomitant]
  6. SINGULAIR [Concomitant]
  7. ATENOLOL [Concomitant]
  8. FUROSEMIDE [Concomitant]
  9. LIPITOR [Concomitant]
  10. LORATADINE [Concomitant]
  11. MIRAPEX [Concomitant]
  12. DOXAZOSIN MESYLATE [Concomitant]
  13. NASACORT [Concomitant]
  14. VICODIN [Concomitant]
  15. LUNESTA [Concomitant]
  16. TRAMADOL HCL [Concomitant]
  17. WELLBUTRIN XL [Concomitant]
  18. DETROL [Concomitant]
  19. VIOXX [Concomitant]

REACTIONS (1)
  - CEREBROVASCULAR ACCIDENT [None]
